FAERS Safety Report 8402595-X (Version None)
Quarter: 2012Q2

REPORT INFORMATION
  Report Type: 
  Country: None (occurrence: None)
  Receive Date: 20120601
  Receipt Date: 20120518
  Transmission Date: 20120825
  Serious: Yes (Hospitalization, Other)
  Sender: FDA-Public Use
  Company Number: CA-CELGENEUS-028-50794-12042075

PATIENT
  Age: 38 Year
  Sex: Female

DRUGS (5)
  1. VIDAZA [Suspect]
     Route: 041
  2. VORINOSTAT [Concomitant]
     Dosage: 200 MILLIGRAM
     Route: 065
     Dates: start: 20120130
  3. VIDAZA [Suspect]
     Route: 058
     Dates: start: 20110912
  4. PLATELETS [Concomitant]
     Route: 041
  5. RED BLOOD CELLS [Concomitant]
     Route: 041

REACTIONS (7)
  - HAEMORRHAGE [None]
  - COMPARTMENT SYNDROME [None]
  - PANCYTOPENIA [None]
  - INJECTION SITE MOVEMENT IMPAIRMENT [None]
  - PYREXIA [None]
  - INJECTION SITE NODULE [None]
  - INCORRECT ROUTE OF DRUG ADMINISTRATION [None]
